FAERS Safety Report 9845620 (Version 1)
Quarter: 2014Q1

REPORT INFORMATION
  Report Type: Spontaneous
  Country: US (occurrence: None)
  Receive Date: 20140122
  Receipt Date: 20140122
  Transmission Date: 20141002
  Serious: Yes (Hospitalization)
  Sender: FDA-Public Use
  Company Number: 2014P1000358

PATIENT
  Age: 64 Year
  Sex: Male

DRUGS (7)
  1. FORTAZ [Suspect]
     Indication: PERITONITIS
     Route: 033
     Dates: start: 2013
  2. GENTAMICIN [Suspect]
     Indication: PERITONITIS
     Route: 033
     Dates: start: 20131023, end: 20131023
  3. VANCOMYCIN [Suspect]
     Indication: PERITONITIS
     Route: 033
     Dates: start: 201310
  4. AUGMENTIN [Suspect]
     Indication: PERITONITIS
     Route: 048
  5. DINEAL 1.5% LOW CALCIUM AMBUFLEX [Concomitant]
  6. DIANEAL 2.5 % LOW CALCIUM AMBUFLEX [Concomitant]
  7. EXTRANEAL [Concomitant]

REACTIONS (2)
  - Haemodialysis [None]
  - Sepsis [None]
